FAERS Safety Report 9135262 (Version 1)
Quarter: 2013Q1

REPORT INFORMATION
  Report Type: Spontaneous
  Country: US (occurrence: US)
  Receive Date: 20130304
  Receipt Date: 20130304
  Transmission Date: 20140127
  Serious: No
  Sender: FDA-Public Use
  Company Number: US-BAYER-2013-026941

PATIENT
  Age: 40 Year
  Sex: Female
  Weight: 109 kg

DRUGS (3)
  1. ALEVE CAPLET/TABLET,MIDOL EXTENDED RELIEF CAPLET [Suspect]
     Indication: ANALGESIC THERAPY
     Dosage: 1 DF, QID
     Route: 048
     Dates: start: 2011, end: 20130225
  2. VITAMIN D3 [Concomitant]
  3. LOVAXIL [Concomitant]

REACTIONS (2)
  - Drug ineffective [None]
  - Incorrect drug administration duration [None]
